FAERS Safety Report 10450533 (Version 8)
Quarter: 2015Q1

REPORT INFORMATION
  Report Type: Spontaneous
  Country: US (occurrence: US)
  Receive Date: 20140912
  Receipt Date: 20150112
  Transmission Date: 20150720
  Serious: Yes (Hospitalization, Disabling, Other)
  Sender: FDA-Public Use
  Company Number: US-009507513-1409USA005678

PATIENT
  Sex: Female

DRUGS (15)
  1. ALENDRONATE SODIUM. [Suspect]
     Active Substance: ALENDRONATE SODIUM
     Indication: RHEUMATOID ARTHRITIS
  2. FOSAMAX [Suspect]
     Active Substance: ALENDRONATE SODIUM
     Indication: OSTEOPOROSIS
     Dosage: 70 MG, QW
     Route: 048
     Dates: start: 20020510
  3. FOSAMAX PLUS D [Suspect]
     Active Substance: ALENDRONATE SODIUM\CHOLECALCIFEROL
     Indication: RHEUMATOID ARTHRITIS
  4. ACTONEL [Suspect]
     Active Substance: RISEDRONATE SODIUM
     Indication: OSTEOPOROSIS
     Dosage: 35 MG, QW
     Route: 048
     Dates: start: 20031013, end: 20050719
  5. ACTONEL [Suspect]
     Active Substance: RISEDRONATE SODIUM
     Indication: RHEUMATOID ARTHRITIS
  6. CALCIUM (UNSPECIFIED) [Concomitant]
     Active Substance: CALCIUM
     Indication: ROUTINE HEALTH MAINTENANCE
     Dosage: 1 DF, QD
     Dates: start: 1991
  7. FOSAMAX [Suspect]
     Active Substance: ALENDRONATE SODIUM
     Indication: RHEUMATOID ARTHRITIS
  8. FOLIC ACID. [Concomitant]
     Active Substance: FOLIC ACID
     Indication: ROUTINE HEALTH MAINTENANCE
     Dosage: 1 DF, QD
     Dates: start: 1991
  9. VITAMIN B (UNSPECIFIED) [Concomitant]
     Indication: ROUTINE HEALTH MAINTENANCE
     Dosage: 1 DF, QD
     Dates: start: 1991
  10. FOSAMAX [Suspect]
     Active Substance: ALENDRONATE SODIUM
     Indication: RHEUMATOID ARTHRITIS
     Dosage: 70 MG, QW
     Route: 048
     Dates: start: 20070115, end: 2008
  11. FOSAMAX PLUS D [Suspect]
     Active Substance: ALENDRONATE SODIUM\CHOLECALCIFEROL
     Indication: OSTEOPOROSIS
     Dosage: 70 MG, QW
     Route: 048
     Dates: start: 20051203, end: 20060904
  12. ENBREL [Concomitant]
     Active Substance: ETANERCEPT
     Indication: RHEUMATOID ARTHRITIS
     Dosage: UNK
     Dates: start: 20010425
  13. FOSAMAX [Suspect]
     Active Substance: ALENDRONATE SODIUM
     Indication: OSTEOPOROSIS
     Dosage: 70 MG, QW
     Route: 048
     Dates: start: 20090420, end: 20110520
  14. ALENDRONATE SODIUM. [Suspect]
     Active Substance: ALENDRONATE SODIUM
     Indication: OSTEOPOROSIS
     Dosage: UNK
     Route: 048
  15. VITAMINS (UNSPECIFIED) [Concomitant]
     Active Substance: VITAMINS
     Indication: ROUTINE HEALTH MAINTENANCE
     Dosage: 1 DF, QD
     Dates: start: 1991

REACTIONS (45)
  - Arthritis [Unknown]
  - Transient ischaemic attack [Unknown]
  - Femur fracture [Recovering/Resolving]
  - Low turnover osteopathy [Not Recovered/Not Resolved]
  - Urinary tract infection [Not Recovered/Not Resolved]
  - Pain [Not Recovered/Not Resolved]
  - Eye operation [Unknown]
  - Hypertension [Unknown]
  - Renal stone removal [Unknown]
  - Hypothyroidism [Unknown]
  - Off label use [Recovered/Resolved]
  - Arthralgia [Unknown]
  - Skin ulcer [Unknown]
  - Cardiac failure congestive [Unknown]
  - Nephrolithiasis [Unknown]
  - Inappropriate schedule of drug administration [Unknown]
  - Hernia repair [Unknown]
  - Pain [Unknown]
  - Angiopathy [Unknown]
  - Constipation [Unknown]
  - Colectomy [Unknown]
  - Cerebrovascular accident [Unknown]
  - Back pain [Unknown]
  - Cataract [Unknown]
  - Blood cholesterol increased [Unknown]
  - Gastrooesophageal reflux disease [Unknown]
  - Hypertensive crisis [Unknown]
  - Therapeutic procedure [Unknown]
  - Small intestinal obstruction [Unknown]
  - Coronary artery disease [Unknown]
  - Urinary tract infection [Unknown]
  - Femur fracture [Not Recovered/Not Resolved]
  - Calcium deficiency [Unknown]
  - Cardiac failure congestive [Unknown]
  - Anaemia [Unknown]
  - Type 1 diabetes mellitus [Unknown]
  - Bursitis [Unknown]
  - Myocardial infarction [Unknown]
  - Osteoporosis [Not Recovered/Not Resolved]
  - Gingival disorder [Unknown]
  - Intestinal obstruction [Unknown]
  - Fall [Recovering/Resolving]
  - Intramedullary rod insertion [Recovered/Resolved]
  - Vitamin D deficiency [Unknown]
  - Eye operation [Unknown]

NARRATIVE: CASE EVENT DATE: 2002
